FAERS Safety Report 7928549-5 (Version None)
Quarter: 2011Q4

REPORT INFORMATION
  Report Type: 
  Country: None (occurrence: None)
  Receive Date: 20111118
  Receipt Date: 20111114
  Transmission Date: 20120403
  Serious: Yes (Other)
  Sender: FDA-Public Use
  Company Number: US-BRISTOL-MYERS SQUIBB COMPANY-16229189

PATIENT
  Age: 62 Year
  Sex: Female
  Weight: 73 kg

DRUGS (21)
  1. ZOLOFT [Suspect]
     Indication: ANXIETY
  2. PROZAC [Suspect]
     Indication: ANXIETY
  3. CYMBALTA [Suspect]
     Indication: ANXIETY
  4. PAXIL [Suspect]
     Indication: DEPRESSION
  5. PAMELOR [Suspect]
     Indication: ANXIETY
  6. REMERON [Suspect]
     Indication: DEPRESSION
  7. PAMELOR [Suspect]
     Indication: DEPRESSION
  8. ZOLOFT [Suspect]
     Indication: DEPRESSION
  9. REMERON [Suspect]
     Indication: ANXIETY
  10. WELLBUTRIN [Suspect]
     Indication: DEPRESSION
  11. AMBIEN [Concomitant]
     Indication: SLEEP DISORDER
  12. NARDIL [Suspect]
     Indication: ANXIETY
     Dates: start: 20101228
  13. ABILIFY [Suspect]
     Indication: ANXIETY
  14. PRISTIQ [Suspect]
     Indication: ANXIETY
  15. CYMBALTA [Suspect]
     Indication: DEPRESSION
  16. PAXIL [Suspect]
     Indication: ANXIETY
  17. ABILIFY [Suspect]
     Indication: DEPRESSION
  18. PROZAC [Suspect]
     Indication: DEPRESSION
  19. PRISTIQ [Suspect]
     Indication: DEPRESSION
  20. WELLBUTRIN [Suspect]
     Indication: ANXIETY
  21. NARDIL [Suspect]
     Indication: DEPRESSION
     Dates: start: 20101228

REACTIONS (3)
  - DRUG INEFFECTIVE [None]
  - OEDEMA PERIPHERAL [None]
  - THROMBOSIS [None]
